FAERS Safety Report 7012781-1 (Version None)
Quarter: 2010Q3

REPORT INFORMATION
  Report Type: 
  Country: None (occurrence: None)
  Receive Date: 20100924
  Receipt Date: 20100917
  Transmission Date: 20110219
  Serious: Yes (Death)
  Sender: FDA-Public Use
  Company Number: A0882845A

PATIENT
  Sex: Male

DRUGS (1)
  1. ARIXTRA [Suspect]
     Dosage: 7.5MG PER DAY

REACTIONS (2)
  - DEATH [None]
  - SUBDURAL HAEMATOMA [None]
